FAERS Safety Report 9681122 (Version 3)
Quarter: 2013Q4

REPORT INFORMATION
  Report Type: Spontaneous
  Country: FR (occurrence: FR)
  Receive Date: 20131111
  Receipt Date: 20131211
  Transmission Date: 20140711
  Serious: Yes (Other)
  Sender: FDA-Public Use
  Company Number: FR-NOVOPROD-392008

PATIENT
  Age: 72 Year
  Sex: Female
  Weight: 90 kg

DRUGS (7)
  1. NOVOMIX 30 FLEXPEN [Suspect]
     Indication: TYPE 2 DIABETES MELLITUS
     Dosage: 38 IU IN MORNING AND 18 IN EVENING
     Route: 065
  2. KARDEGIC [Concomitant]
     Indication: CEREBROVASCULAR ACCIDENT
  3. COVERSYL                           /00790702/ [Concomitant]
     Dosage: ONE DOSE DAILY
  4. FUROSEMIDE [Concomitant]
     Dosage: 40 MG, UNK
  5. COZAAR [Concomitant]
     Dosage: 100 MG, QD
  6. ZYLORIC [Concomitant]
     Dosage: 100 MG, QD
  7. KAYEXALATE [Concomitant]
     Dosage: ONE DOSE DAILY

REACTIONS (2)
  - Pyelonephritis [Recovered/Resolved]
  - Hyperglycaemia [Recovered/Resolved]
